FAERS Safety Report 22649615 (Version 1)
Quarter: 2023Q2

REPORT INFORMATION
  Report Type: Spontaneous
  Country: DE (occurrence: DE)
  Receive Date: 20230628
  Receipt Date: 20230628
  Transmission Date: 20230722
  Serious: Yes (Other)
  Sender: FDA-Public Use
  Company Number: DE-BAUSCH-BL-2019-024246

PATIENT
  Age: 77 Year
  Sex: Female

DRUGS (7)
  1. PREDNISOLONE [Suspect]
     Active Substance: PREDNISOLONE
     Indication: Eye inflammation
     Route: 065
     Dates: start: 2019
  2. TREHALOSE [Suspect]
     Active Substance: TREHALOSE
     Indication: Product used for unknown indication
     Route: 065
     Dates: start: 2019
  3. HYPROMELLOSES [Suspect]
     Active Substance: HYPROMELLOSES
     Indication: Product used for unknown indication
     Route: 065
     Dates: start: 2019
  4. EFEROX [Concomitant]
     Active Substance: LEVOTHYROXINE SODIUM
     Indication: Product used for unknown indication
     Route: 065
  5. DEXPANTHENOL [Suspect]
     Active Substance: DEXPANTHENOL
     Indication: Product used for unknown indication
     Route: 065
     Dates: start: 2019
  6. OFLOXACIN [Suspect]
     Active Substance: OFLOXACIN
     Indication: Preoperative care
     Route: 065
     Dates: start: 201901
  7. SYSTANE (HYPROMELLOSE 2910 (4000 MPA.S)) [Suspect]
     Active Substance: HYPROMELLOSE 2910 (4000 MPA.S)
     Indication: Product used for unknown indication
     Route: 065
     Dates: start: 2019

REACTIONS (14)
  - Pulmonary congestion [Unknown]
  - Contraindicated product administered [Unknown]
  - Headache [Unknown]
  - Rhinitis [Unknown]
  - Arthropathy [Unknown]
  - Pruritus [Unknown]
  - Eye inflammation [Not Recovered/Not Resolved]
  - Dry eye [Unknown]
  - Sensation of foreign body [Unknown]
  - Nasopharyngitis [Unknown]
  - Impaired quality of life [Unknown]
  - Lacrimation increased [Unknown]
  - Skin disorder [Unknown]
  - Eye irritation [Unknown]

NARRATIVE: CASE EVENT DATE: 20190101
